FAERS Safety Report 6030955-3 (Version None)
Quarter: 2009Q1

REPORT INFORMATION
  Report Type: 
  Country: None (occurrence: None)
  Receive Date: 20090106
  Receipt Date: 20081218
  Transmission Date: 20090719
  Serious: Yes (Other)
  Sender: FDA-Public Use
  Company Number: DAB-2008-00070

PATIENT
  Sex: Female

DRUGS (1)
  1. EPIRUBICIN [Suspect]

REACTIONS (1)
  - THROMBOCYTHAEMIA [None]
